FAERS Safety Report 9014107 (Version 1)
Quarter: 2013Q1

REPORT INFORMATION
  Report Type: Other
  Country: GB (occurrence: GB)
  Receive Date: 20130115
  Receipt Date: 20130115
  Transmission Date: 20140127
  Serious: Yes (Life-Threatening)
  Sender: FDA-Public Use
  Company Number: GB-WATSON-2013-00217

PATIENT
  Age: 66 Year
  Sex: Female
  Weight: 104 kg

DRUGS (6)
  1. SIMVASTATIN (UNKNOWN) [Suspect]
     Indication: TYPE 2 DIABETES MELLITUS
     Dosage: 40 MG, UNKNOWN
     Route: 048
     Dates: start: 2004, end: 20120917
  2. CANDESARTAN [Concomitant]
     Indication: PRODUCT USED FOR UNKNOWN INDICATION
     Dosage: 32 MG, UNKNOWN
     Route: 065
  3. FEXOFENADINE [Concomitant]
     Indication: PRODUCT USED FOR UNKNOWN INDICATION
     Dosage: UNK, UNKNOWN
     Route: 065
  4. LANSOPRAZOLE [Concomitant]
     Indication: PRODUCT USED FOR UNKNOWN INDICATION
     Dosage: UNKNOWN. MUCH LESS TAKEN SINCE STOPPING SIMVASTATIN
     Route: 065
  5. ETODOLAC [Concomitant]
     Indication: PRODUCT USED FOR UNKNOWN INDICATION
     Dosage: UNKNOWN. NONE TAKEN SINCE STOPPING SIMVASTATIN
     Route: 065
  6. METFORMIN [Concomitant]
     Indication: PRODUCT USED FOR UNKNOWN INDICATION
     Dosage: UNK, UNKNOWN
     Route: 065

REACTIONS (11)
  - Cardiomyopathy [Unknown]
  - Neuropathy peripheral [Recovering/Resolving]
  - Muscular weakness [Recovered/Resolved]
  - Arthralgia [Recovered/Resolved]
  - Dyshidrotic eczema [Recovered/Resolved]
  - Local swelling [Recovered/Resolved]
  - Dyspepsia [Recovering/Resolving]
  - Flatulence [Recovering/Resolving]
  - Dyspnoea [Recovering/Resolving]
  - Mobility decreased [Recovered/Resolved]
  - Dysstasia [Recovered/Resolved]
